FAERS Safety Report 7211526-X (Version None)
Quarter: 2010Q4

REPORT INFORMATION
  Report Type: 
  Country: None (occurrence: None)
  Receive Date: 20101227
  Receipt Date: 20101213
  Transmission Date: 20110411
  Serious: Yes (Hospitalization)
  Sender: FDA-Public Use
  Company Number: DSA_44508_2010

PATIENT
  Age: 57 Year
  Sex: Male

DRUGS (10)
  1. ENALAPRIL MALEATE [Suspect]
     Indication: HYPERTENSION
     Dosage: (DF ORAL)
     Route: 048
     Dates: end: 20101011
  2. BACTRIM [Suspect]
     Indication: PRODUCT USED FOR UNKNOWN INDICATION
     Dosage: (DF ORAL)
     Route: 048
     Dates: start: 20100901, end: 20101011
  3. NITROGLYCERIN [Concomitant]
  4. PLAVIX [Concomitant]
  5. PRAVASTATINA [Concomitant]
  6. INSULIN [Concomitant]
  7. KARDEGIC [Concomitant]
  8. BISOPROLOL FUMARATE [Concomitant]
  9. ADANCOR [Concomitant]
  10. LASIX [Concomitant]

REACTIONS (2)
  - FEMORAL ARTERIAL STENOSIS [None]
  - HYPERKALAEMIA [None]
